FAERS Safety Report 10999060 (Version 2)
Quarter: 2015Q2

REPORT INFORMATION
  Report Type: Spontaneous
  Country: US (occurrence: US)
  Receive Date: 20150408
  Receipt Date: 20150513
  Transmission Date: 20150821
  Serious: Yes (Other)
  Sender: FDA-Public Use
  Company Number: US-ENDO PHARMACEUTICALS INC.-2015-000298

PATIENT
  Sex: Female
  Weight: 113.5 kg

DRUGS (9)
  1. IMIPRAM HCL [Concomitant]
     Indication: URINARY INCONTINENCE
  2. LYRICA [Concomitant]
     Active Substance: PREGABALIN
     Indication: NEUROPATHY PERIPHERAL
  3. IMIPRAM HCL [Concomitant]
     Indication: BLADDER SPASM
     Route: 065
     Dates: start: 2014
  4. LYRICA [Concomitant]
     Active Substance: PREGABALIN
     Indication: FIBROMYALGIA
     Route: 048
     Dates: start: 2011
  5. TRAMADOL [Concomitant]
     Active Substance: TRAMADOL
     Indication: NEURALGIA
     Route: 065
  6. BUSPIRONE [Concomitant]
     Active Substance: BUSPIRONE HYDROCHLORIDE
     Indication: DEPRESSION
     Route: 065
  7. METHOCARBAMOL TABLETS 500MG [Suspect]
     Active Substance: METHOCARBAMOL
     Indication: MUSCLE SPASMS
     Route: 065
     Dates: start: 2011
  8. ADVAIR HFA [Concomitant]
     Active Substance: FLUTICASONE PROPIONATE\SALMETEROL XINAFOATE
     Indication: ASTHMA
     Route: 065
  9. METHOCARBAMOL TABLETS 500MG [Suspect]
     Active Substance: METHOCARBAMOL
     Indication: NEURALGIA

REACTIONS (1)
  - Intestinal haemorrhage [Recovered/Resolved]
